FAERS Safety Report 5962399-4 (Version None)
Quarter: 2008Q4

REPORT INFORMATION
  Report Type: 
  Country: None (occurrence: None)
  Receive Date: 20081121
  Receipt Date: 20081113
  Transmission Date: 20090506
  Serious: Yes (Hospitalization, Other)
  Sender: FDA-Public Use
  Company Number: US-PFIZER INC-2008079461

PATIENT
  Sex: Female
  Weight: 129.09 kg

DRUGS (9)
  1. TIKOSYN [Suspect]
     Indication: ATRIAL FIBRILLATION
     Route: 048
     Dates: start: 20070101
  2. TIKOSYN [Interacting]
     Dates: start: 20080911, end: 20080920
  3. DIFLUCAN [Interacting]
  4. SYNTHROID [Concomitant]
  5. PLAQUENIL [Concomitant]
  6. COZAAR [Concomitant]
  7. WARFARIN SODIUM [Concomitant]
  8. PREDNISONE TAB [Concomitant]
  9. CLEOCIN [Concomitant]

REACTIONS (5)
  - ASTHMA [None]
  - DRUG INTERACTION [None]
  - PNEUMONIA FUNGAL [None]
  - RESPIRATORY TRACT CONGESTION [None]
  - TORSADE DE POINTES [None]
